FAERS Safety Report 6203101-0 (Version None)
Quarter: 2009Q2

REPORT INFORMATION
  Report Type: 
  Country: None (occurrence: None)
  Receive Date: 20090527
  Receipt Date: 20090526
  Transmission Date: 20091009
  Serious: Yes (Other)
  Sender: FDA-Public Use
  Company Number: BE-JNJFOC-20090505689

PATIENT
  Sex: Male

DRUGS (4)
  1. TAVANIC [Suspect]
     Indication: BRONCHOPNEUMONIA
     Route: 048
  2. LYSOMUCIL [Concomitant]
  3. ANTIPYRETIC ANALGESICS [Concomitant]
  4. NSAIDS [Concomitant]

REACTIONS (2)
  - CONFUSIONAL STATE [None]
  - DELIRIUM [None]
